FAERS Safety Report 12693106 (Version 2)
Quarter: 2016Q3

REPORT INFORMATION
  Report Type: Spontaneous
  Country: US (occurrence: US)
  Receive Date: 20160829
  Receipt Date: 20160902
  Transmission Date: 20161109
  Serious: Yes (Hospitalization)
  Sender: FDA-Public Use
  Company Number: US-VERTEX PHARMACEUTICALS-2016-004999

PATIENT
  Age: 15 Year
  Sex: Male

DRUGS (11)
  1. PULMOZYME [Suspect]
     Active Substance: DORNASE ALFA
     Indication: CYSTIC FIBROSIS
     Dosage: 1MG/ 1 ML, QD
     Route: 055
     Dates: start: 20131216
  2. URSODIOL. [Concomitant]
     Active Substance: URSODIOL
  3. ORKAMBI [Suspect]
     Active Substance: IVACAFTOR\LUMACAFTOR
     Indication: CYSTIC FIBROSIS
     Dosage: 400-250 MG, BID
     Route: 048
     Dates: start: 20151106
  4. XOPENEX [Concomitant]
     Active Substance: LEVALBUTEROL HYDROCHLORIDE
  5. CALCIUM + VITAMIN D [Concomitant]
     Active Substance: CALCIUM\VITAMIN D
  6. MEPHYTON [Concomitant]
     Active Substance: PHYTONADIONE
  7. VITAMIN A [Concomitant]
     Active Substance: VITAMIN A
  8. AQUADEKS [Concomitant]
     Active Substance: MINERALS\VITAMINS
  9. AZELASTINE [Concomitant]
     Active Substance: AZELASTINE
  10. QUER [Concomitant]
  11. CREON [Concomitant]
     Active Substance: PANCRELIPASE AMYLASE\PANCRELIPASE LIPASE\PANCRELIPASE PROTEASE

REACTIONS (3)
  - Dyspnoea [Unknown]
  - Cyanosis [Unknown]
  - Cough [Unknown]

NARRATIVE: CASE EVENT DATE: 201608
